FAERS Safety Report 8287772-3 (Version None)
Quarter: 2012Q2

REPORT INFORMATION
  Report Type: 
  Country: None (occurrence: None)
  Receive Date: 20120416
  Receipt Date: 20120405
  Transmission Date: 20120825
  Serious: Yes (Hospitalization, Other)
  Sender: FDA-Public Use
  Company Number: US-MERCK-1111USA02475

PATIENT
  Age: 69 Year
  Sex: Female

DRUGS (2)
  1. ZOMETA [Suspect]
     Route: 065
  2. FOSAMAX [Suspect]
     Indication: MULTIPLE MYELOMA
     Route: 048

REACTIONS (31)
  - ADHESION [None]
  - MULTIPLE MYELOMA [None]
  - LUNG DISORDER [None]
  - HYPERTENSION [None]
  - ARTHRITIS [None]
  - CLOSTRIDIUM TEST POSITIVE [None]
  - DIZZINESS [None]
  - NORMOCHROMIC NORMOCYTIC ANAEMIA [None]
  - WEIGHT DECREASED [None]
  - DEEP VEIN THROMBOSIS [None]
  - LEUKOENCEPHALOPATHY [None]
  - RENAL FAILURE [None]
  - OFF LABEL USE [None]
  - TINNITUS [None]
  - GALLBLADDER DISORDER [None]
  - DEHYDRATION [None]
  - DIVERTICULUM INTESTINAL [None]
  - VARICOSE VEIN [None]
  - CONSTIPATION [None]
  - ABDOMINAL PAIN [None]
  - JOINT EFFUSION [None]
  - DEPRESSION [None]
  - FATIGUE [None]
  - RENAL CYST [None]
  - BALANCE DISORDER [None]
  - THROMBOCYTOPENIA [None]
  - HYPOGAMMAGLOBULINAEMIA [None]
  - SPINAL COMPRESSION FRACTURE [None]
  - OSTEONECROSIS OF JAW [None]
  - NEUROPATHY PERIPHERAL [None]
  - DECREASED APPETITE [None]
